FAERS Safety Report 8367825-1 (Version None)
Quarter: 2012Q1

REPORT INFORMATION
  Report Type: 
  Country: None (occurrence: None)
  Receive Date: 20120323
  Receipt Date: 20111114
  Transmission Date: 20120608
  Serious: Yes (Hospitalization)
  Sender: FDA-Public Use
  Company Number: 163-21880-11112144

PATIENT
  Age: 67 Year
  Sex: Male

DRUGS (13)
  1. GLIMEPIRIDE (GLIMEPIRINE) [Concomitant]
  2. NITROGLYCERIN [Concomitant]
  3. REVLIMID [Suspect]
     Indication: MYELODYSPLASTIC SYNDROME
     Dosage: 10 MG, QD X 28 DAYS, PO
     Route: 048
     Dates: start: 20080114
  4. PAROXETINE HCL [Concomitant]
  5. PROAIR (FLUTICASONE PROPINOATE) [Concomitant]
  6. FOLIC ACID [Concomitant]
  7. PRADAXA (DABIGATRAN ETIXILATE MESYLATE) [Concomitant]
  8. LISINOSPRIL (LISINOPRIL) [Concomitant]
  9. METFORMIN HCL [Concomitant]
  10. DIGOXIN [Concomitant]
  11. FLOMAX [Concomitant]
  12. SIMVASTATIN [Concomitant]
  13. METOPROLOL TARTRATE [Concomitant]

REACTIONS (1)
  - ATRIAL FIBRILLATION [None]
